FAERS Safety Report 7518675-7 (Version None)
Quarter: 2011Q2

REPORT INFORMATION
  Report Type: 
  Country: None (occurrence: None)
  Receive Date: 20110602
  Receipt Date: 20110519
  Transmission Date: 20111010
  Serious: Yes (Other)
  Sender: FDA-Public Use
  Company Number: PHFR2011GB00682

PATIENT
  Sex: Male

DRUGS (8)
  1. CLOZARIL [Suspect]
     Indication: SCHIZOPHRENIA
     Dosage: 300 MG, QD
     Route: 048
     Dates: start: 20100211, end: 20110114
  2. LANSOPRAZOLE [Concomitant]
     Indication: DYSPEPSIA
     Dosage: UNK
     Route: 048
     Dates: start: 20030101
  3. ACETAMINOPHEN AND CODEINE PHOSPHATE [Concomitant]
     Indication: PAIN
     Dosage: 30/500 PRN
     Route: 048
     Dates: start: 20030101
  4. VALPROATE SODIUM [Concomitant]
     Indication: EPILEPSY
     Dosage: 500 MG, BID
     Route: 048
     Dates: start: 20091201, end: 20110201
  5. ANTIEPILEPTICS [Concomitant]
     Indication: EPILEPSY
     Dosage: UNK DF, UNK
  6. PROCYCLIDINE HYDROCHLORIDE 2MG TAB [Concomitant]
     Indication: EXTRAPYRAMIDAL DISORDER
     Dosage: 5 MG, BID
     Route: 048
     Dates: start: 19700101
  7. CARBAMAZEPINE [Concomitant]
     Indication: EPILEPSY
     Dosage: 700 MG/DAY
     Route: 048
     Dates: start: 20110201
  8. SERTRALINE HYDROCHLORIDE [Concomitant]
     Indication: DEPRESSION
     Dosage: 200 MG/DAY
     Route: 048
     Dates: start: 20050101

REACTIONS (9)
  - PARANOIA [None]
  - ANAEMIA [None]
  - ANGINA PECTORIS [None]
  - INTERMITTENT CLAUDICATION [None]
  - CONFUSIONAL STATE [None]
  - GAIT DISTURBANCE [None]
  - EPILEPSY [None]
  - NEUTROPENIA [None]
  - DRUG INEFFECTIVE [None]
